FAERS Safety Report 16234860 (Version 1)
Quarter: 2019Q2

REPORT INFORMATION
  Report Type: Spontaneous
  Country: IT (occurrence: IT)
  Receive Date: 20190424
  Receipt Date: 20190424
  Transmission Date: 20190711
  Serious: Yes (Other)
  Sender: FDA-Public Use
  Company Number: IT-GE HEALTHCARE LIFE SCIENCES-2018CSU004582

PATIENT

DRUGS (5)
  1. OMNISCAN [Suspect]
     Active Substance: GADODIAMIDE
     Dosage: UNK, SINGLE
     Route: 042
  2. MEGLUMINE GADOTERATE [Suspect]
     Active Substance: GADOTERATE MEGLUMINE
     Indication: NUCLEAR MAGNETIC RESONANCE IMAGING
     Route: 042
  3. MEGLUMINE GADOTERATE [Suspect]
     Active Substance: GADOTERATE MEGLUMINE
     Indication: PRODUCT USED FOR UNKNOWN INDICATION
  4. OMNISCAN [Suspect]
     Active Substance: GADODIAMIDE
     Indication: NUCLEAR MAGNETIC RESONANCE IMAGING
     Dosage: UNK UNK, SINGLE
     Route: 042
  5. OMNISCAN [Suspect]
     Active Substance: GADODIAMIDE
     Indication: PRODUCT USED FOR UNKNOWN INDICATION
     Dosage: UNK, SINGLE
     Route: 042

REACTIONS (7)
  - Muscular weakness [Recovered/Resolved]
  - Dry skin [Recovered/Resolved]
  - Confusional state [Not Recovered/Not Resolved]
  - Pain [Recovered/Resolved]
  - Fatigue [Recovered/Resolved]
  - Gadolinium deposition disease [Unknown]
  - Headache [Recovered/Resolved]
